FAERS Safety Report 10711540 (Version 9)
Quarter: 2015Q2

REPORT INFORMATION
  Report Type: Spontaneous
  Country: IL (occurrence: IL)
  Receive Date: 20150114
  Receipt Date: 20150616
  Transmission Date: 20150821
  Serious: Yes (Hospitalization, Other)
  Sender: FDA-Public Use
  Company Number: IL-PFIZER INC-2014144497

PATIENT
  Age: 48 Year
  Sex: Male

DRUGS (12)
  1. INLYTA [Suspect]
     Active Substance: AXITINIB
     Dosage: 5 MG, 1X/DAY, CONSECUTIVELY, CUMULATIVE DOSE ABOUT 2400
     Route: 048
  2. OXYCONTIN [Concomitant]
     Active Substance: OXYCODONE HYDROCHLORIDE
     Indication: PAIN
  3. PREDNISONE. [Concomitant]
     Active Substance: PREDNISONE
     Dosage: UNK
  4. PERCOCET [Concomitant]
     Active Substance: ACETAMINOPHEN\OXYCODONE HYDROCHLORIDE
     Indication: PAIN
     Dosage: UNK
  5. INLYTA [Suspect]
     Active Substance: AXITINIB
     Dosage: 3 MG, 2X/DAY, CONSECUTIVE,  CUMULATIVE DOSE WAS HARD TO ESTIMATE
     Route: 048
  6. RAFASSAL [Concomitant]
     Dosage: UNK
  7. INLYTA [Suspect]
     Active Substance: AXITINIB
     Indication: RENAL CELL CARCINOMA
     Dosage: 5 MG, 2X/DAY CONTINUOUS
     Route: 048
     Dates: start: 20140514
  8. INLYTA [Suspect]
     Active Substance: AXITINIB
     Dosage: 5 MG TWICE DAILY
     Route: 048
  9. INLYTA [Suspect]
     Active Substance: AXITINIB
     Dosage: UNK
     Route: 048
  10. TRADJENTA [Concomitant]
     Active Substance: LINAGLIPTIN
     Dosage: UNK
  11. ENALADEX [Concomitant]
     Active Substance: ENALAPRIL MALEATE
     Dosage: UNK
  12. ASTONIN [Concomitant]
     Dosage: UNK

REACTIONS (31)
  - Oral pain [Recovered/Resolved]
  - Head discomfort [Recovered/Resolved]
  - Abdominal pain [Recovering/Resolving]
  - Frequent bowel movements [Recovering/Resolving]
  - Blood thyroid stimulating hormone increased [Not Recovered/Not Resolved]
  - Eye irritation [Unknown]
  - Blood albumin decreased [Unknown]
  - Asthenia [Recovering/Resolving]
  - Weight decreased [Not Recovered/Not Resolved]
  - Diarrhoea [Recovering/Resolving]
  - Dry skin [Recovering/Resolving]
  - Haemoglobin decreased [Recovering/Resolving]
  - Decreased appetite [Recovering/Resolving]
  - Gingival bleeding [Not Recovered/Not Resolved]
  - Chromaturia [Recovered/Resolved]
  - Perineal pain [Recovering/Resolving]
  - General physical health deterioration [Unknown]
  - Dysphonia [Not Recovered/Not Resolved]
  - Influenza [Recovered/Resolved]
  - Nausea [Recovering/Resolving]
  - Swelling face [Unknown]
  - Vomiting [Recovering/Resolving]
  - Blood potassium decreased [Recovering/Resolving]
  - Blood pressure increased [Not Recovered/Not Resolved]
  - Tooth disorder [Not Recovered/Not Resolved]
  - Feeling cold [Unknown]
  - Skin haemorrhage [Recovering/Resolving]
  - Peripheral swelling [Unknown]
  - Renal failure [Recovering/Resolving]
  - Blood magnesium decreased [Recovering/Resolving]
  - Blood cortisol decreased [Unknown]

NARRATIVE: CASE EVENT DATE: 2014
